FAERS Safety Report 23276522 (Version 1)
Quarter: 2023Q4

REPORT INFORMATION
  Report Type: Spontaneous
  Country: None (occurrence: CA)
  Receive Date: 20231208
  Receipt Date: 20231208
  Transmission Date: 20240110
  Serious: Yes (Death, Hospitalization)
  Sender: FDA-Public Use
  Company Number: CA-B.Braun Medical Inc.-2149136

PATIENT
  Age: 72 Year
  Sex: Female
  Weight: 58 kg

DRUGS (11)
  1. HEPARIN SODIUM IN DEXTROSE [Suspect]
     Active Substance: HEPARIN SODIUM
     Indication: Pulmonary embolism
     Route: 042
  2. ACETAMINOPHEN [Concomitant]
     Active Substance: ACETAMINOPHEN
  3. CEFTRIAXONE [Concomitant]
     Active Substance: CEFTRIAXONE\CEFTRIAXONE SODIUM
  4. DOXYCYCLINE [Concomitant]
     Active Substance: DOXYCYCLINE
  5. ENOXAPARIN [Concomitant]
     Active Substance: ENOXAPARIN
  6. LORAZEPAM [Concomitant]
     Active Substance: LORAZEPAM
  7. METOCLOPRAMIDE [Concomitant]
     Active Substance: METOCLOPRAMIDE
  8. MORPHINE [Concomitant]
     Active Substance: MORPHINE
  9. ONDANSETRON [Concomitant]
     Active Substance: ONDANSETRON
  10. POTASSIUM [Concomitant]
     Active Substance: POTASSIUM
  11. THIAMINE [Concomitant]
     Active Substance: THIAMINE

REACTIONS (3)
  - Upper gastrointestinal haemorrhage [None]
  - Bronchial aspiration procedure [None]
  - Respiratory failure [None]
